FAERS Safety Report 10237773 (Version 1)
Quarter: 2014Q2

REPORT INFORMATION
  Report Type: Spontaneous
  Country: US (occurrence: None)
  Receive Date: 20140612
  Receipt Date: 20140612
  Transmission Date: 20141212
  Serious: Yes (Hospitalization)
  Sender: FDA-Public Use
  Company Number: None

PATIENT
  Age: 80 Year
  Sex: Female
  Weight: 71.9 kg

DRUGS (2)
  1. CARBOPLATIN [Suspect]
     Dosage: EVERY 3 WEEKS X 4, TOTAL DOSE ADMINISTERED 440 MG
     Dates: start: 20140212
  2. PACLITAXEL (TAXOL) [Suspect]
     Dosage: 60 MG/M2 EVERY WEEK, 110 TOTAL DOSE ADMINISTERED
     Dates: start: 20140212

REACTIONS (4)
  - Transient ischaemic attack [None]
  - Urinary tract infection [None]
  - Confusional state [None]
  - Speech disorder [None]
